FAERS Safety Report 13255163 (Version 1)
Quarter: 2017Q1

REPORT INFORMATION
  Report Type: Spontaneous
  Country: TR (occurrence: TR)
  Receive Date: 20170221
  Receipt Date: 20170221
  Transmission Date: 20170428
  Serious: Yes (Other)
  Sender: FDA-Public Use
  Company Number: TR-ROCHE-1896210

PATIENT
  Age: 59 Year
  Sex: Female
  Weight: 93 kg

DRUGS (1)
  1. ORLISTAT [Suspect]
     Active Substance: ORLISTAT
     Indication: OBESITY
     Route: 065

REACTIONS (1)
  - Acute kidney injury [Recovered/Resolved]
